FAERS Safety Report 21023231 (Version 3)
Quarter: 2022Q3

REPORT INFORMATION
  Report Type: Spontaneous
  Country: JP (occurrence: None)
  Receive Date: 20220629
  Receipt Date: 20220912
  Transmission Date: 20221027
  Serious: Yes (Hospitalization, Other)
  Sender: FDA-Public Use
  Company Number: JP-ROCHE-3123957

PATIENT
  Age: 51 Year
  Sex: Female
  Weight: 46.5 kg

DRUGS (38)
  1. CARVEDILOL [Suspect]
     Active Substance: CARVEDILOL
     Indication: Coronary angioplasty
     Route: 048
  2. MIROGABALIN BESYLATE [Suspect]
     Active Substance: MIROGABALIN BESYLATE
     Indication: Neuropathy peripheral
     Route: 048
     Dates: start: 20220203, end: 20220207
  3. MIROGABALIN BESYLATE [Suspect]
     Active Substance: MIROGABALIN BESYLATE
     Route: 048
     Dates: start: 20220208, end: 20220214
  4. MIROGABALIN BESYLATE [Suspect]
     Active Substance: MIROGABALIN BESYLATE
     Route: 048
     Dates: start: 20220215, end: 20220223
  5. MIROGABALIN BESYLATE [Suspect]
     Active Substance: MIROGABALIN BESYLATE
     Route: 048
     Dates: start: 20220224
  6. ATEZOLIZUMAB [Suspect]
     Active Substance: ATEZOLIZUMAB
     Indication: Product used for unknown indication
     Route: 041
     Dates: start: 20220120
  7. AVASTIN [Suspect]
     Active Substance: BEVACIZUMAB
     Indication: Product used for unknown indication
     Route: 042
     Dates: start: 20220120
  8. AVASTIN [Suspect]
     Active Substance: BEVACIZUMAB
     Route: 042
     Dates: start: 20220303
  9. AVASTIN [Suspect]
     Active Substance: BEVACIZUMAB
     Route: 042
     Dates: start: 20220324
  10. AVASTIN [Suspect]
     Active Substance: BEVACIZUMAB
     Route: 042
     Dates: start: 20220425
  11. CARBOPLATIN [Suspect]
     Active Substance: CARBOPLATIN
     Indication: Non-small cell lung cancer
     Route: 065
     Dates: start: 20220120
  12. CARBOPLATIN [Suspect]
     Active Substance: CARBOPLATIN
     Route: 065
     Dates: start: 20220303
  13. CARBOPLATIN [Suspect]
     Active Substance: CARBOPLATIN
     Route: 065
     Dates: start: 20220324
  14. CARBOPLATIN [Suspect]
     Active Substance: CARBOPLATIN
     Route: 065
     Dates: start: 20220424
  15. PACLITAXEL [Suspect]
     Active Substance: PACLITAXEL
     Indication: Non-small cell lung cancer
     Route: 065
     Dates: start: 20220120
  16. PACLITAXEL [Suspect]
     Active Substance: PACLITAXEL
     Route: 065
     Dates: start: 20220303
  17. PACLITAXEL [Suspect]
     Active Substance: PACLITAXEL
     Route: 065
     Dates: start: 20220324
  18. PACLITAXEL [Suspect]
     Active Substance: PACLITAXEL
     Route: 065
     Dates: start: 20220425
  19. GRANISETRON [Concomitant]
     Active Substance: GRANISETRON
  20. AMINO ACIDS\DEXTROSE\ELECTROLYTES NOS\VITAMINS [Concomitant]
     Active Substance: AMINO ACIDS\DEXTROSE\ELECTROLYTES NOS\VITAMINS
  21. DEXAMETHASONE SODIUM PHOSPHATE [Concomitant]
     Active Substance: DEXAMETHASONE SODIUM PHOSPHATE
  22. GASTER [Concomitant]
     Active Substance: FAMOTIDINE
  23. SULPIRIDE [Concomitant]
     Active Substance: SULPIRIDE
  24. AMITRIPTYLINE [Concomitant]
     Active Substance: AMITRIPTYLINE
  25. DAYVIGO [Concomitant]
     Active Substance: LEMBOREXANT
  26. APREPITANT [Concomitant]
     Active Substance: APREPITANT
  27. DIPHENHYDRAMINE [Concomitant]
     Active Substance: DIPHENHYDRAMINE
  28. PEGFILGRASTIM [Concomitant]
     Active Substance: PEGFILGRASTIM
  29. GLYCYRON [Concomitant]
  30. URSO [Concomitant]
     Active Substance: URSODIOL
  31. ANAMORELIN HYDROCHLORIDE [Concomitant]
     Active Substance: ANAMORELIN HYDROCHLORIDE
  32. ENALAPRIL MALEATE [Concomitant]
     Active Substance: ENALAPRIL MALEATE
  33. CLOPIDOGREL [Concomitant]
     Active Substance: CLOPIDOGREL BISULFATE
  34. ATORVASTATIN [Concomitant]
     Active Substance: ATORVASTATIN
  35. SERTRALINE HYDROCHLORIDE [Concomitant]
     Active Substance: SERTRALINE HYDROCHLORIDE
  36. SULFAMETHOXAZOLE\TRIMETHOPRIM [Concomitant]
     Active Substance: SULFAMETHOXAZOLE\TRIMETHOPRIM
  37. DECADRON [Concomitant]
     Active Substance: DEXAMETHASONE
  38. ZYPREXA ZYDIS [Concomitant]
     Active Substance: OLANZAPINE

REACTIONS (13)
  - COVID-19 [Recovered/Resolved]
  - Decreased appetite [Not Recovered/Not Resolved]
  - Peripheral sensory neuropathy [Not Recovered/Not Resolved]
  - Hypokalaemia [Recovered/Resolved]
  - Dizziness [Recovered/Resolved]
  - Eczema [Not Recovered/Not Resolved]
  - Stomatitis [Recovered/Resolved]
  - Constipation [Not Recovered/Not Resolved]
  - Anaemia [Not Recovered/Not Resolved]
  - Oedema peripheral [Recovered/Resolved]
  - Nausea [Unknown]
  - Vomiting [Unknown]
  - Cervical radiculopathy [Not Recovered/Not Resolved]

NARRATIVE: CASE EVENT DATE: 20220203
